FAERS Safety Report 5008778-3 (Version None)
Quarter: 2006Q2

REPORT INFORMATION
  Report Type: 
  Country: None (occurrence: None)
  Receive Date: 20060519
  Receipt Date: 20060509
  Transmission Date: 20061013
  Serious: Yes (Other)
  Sender: FDA-Public Use
  Company Number: CHPA2006US04570

PATIENT
  Age: 27 Year
  Sex: Female
  Weight: 77.1 kg

DRUGS (23)
  1. TRANSDERM SCOP [Suspect]
     Indication: NAUSEA
     Dosage: SEE IMAGE
     Route: 062
     Dates: start: 20060201, end: 20060201
  2. TRANSDERM SCOP [Suspect]
     Indication: NAUSEA
     Dosage: SEE IMAGE
     Route: 062
     Dates: start: 20060301
  3. TRANSDERM SCOP [Suspect]
     Indication: NAUSEA
     Dosage: SEE IMAGE
     Route: 062
     Dates: start: 20060401
  4. OXYCONTIN [Concomitant]
  5. EFFEXOR [Concomitant]
  6. COREG [Concomitant]
  7. ZELNORM /USA/ (TEGASEROD) [Concomitant]
  8. ZANAFLEX [Concomitant]
  9. LYRICA [Concomitant]
  10. RELPAX (ELETRIPTAN HYDROBROMIDE) [Concomitant]
  11. NEURONTIN [Concomitant]
  12. LASIX [Concomitant]
  13. ASPIRIN [Concomitant]
  14. TOPAMAX [Concomitant]
  15. LIPITOR [Concomitant]
  16. TRAZODONE HCL [Concomitant]
  17. ZYRTEC [Concomitant]
  18. SINGULAIR [Concomitant]
  19. PREVACID [Concomitant]
  20. ALBUTEROL [Concomitant]
  21. ADVAIR DISKUS 100/50 [Concomitant]
  22. ATROVENT [Concomitant]
  23. PANCOF XP (GUAIFENESIN, HYDROCODONE, PSEUDOEPHEDRINE) [Concomitant]

REACTIONS (9)
  - APPLICATION SITE BURN [None]
  - APPLICATION SITE DISCOLOURATION [None]
  - APPLICATION SITE ERYTHEMA [None]
  - APPLICATION SITE EXFOLIATION [None]
  - APPLICATION SITE IRRITATION [None]
  - BURNING SENSATION [None]
  - PERICARDIAL EFFUSION [None]
  - PNEUMONIA [None]
  - PULMONARY OEDEMA [None]
